FAERS Safety Report 15362901 (Version 2)
Quarter: 2018Q4

REPORT INFORMATION
  Report Type: Spontaneous
  Country: GB (occurrence: GB)
  Receive Date: 20180907
  Receipt Date: 20181113
  Transmission Date: 20190204
  Serious: Yes (Life-Threatening, Other)
  Sender: FDA-Public Use
  Company Number: GB-MYLANLABS-2018M1065868

PATIENT
  Age: 39 Year
  Sex: Female
  Weight: 85 kg

DRUGS (3)
  1. ATORVASTATIN [Suspect]
     Active Substance: ATORVASTATIN
     Indication: TYPE IIA HYPERLIPIDAEMIA
     Dosage: 20 MG, QD
     Route: 048
     Dates: start: 20131113, end: 2016
  2. CANDESARTAN. [Concomitant]
     Active Substance: CANDESARTAN
     Indication: PRODUCT USED FOR UNKNOWN INDICATION
     Dosage: UNK
     Route: 065
  3. ATORVASTATIN [Suspect]
     Active Substance: ATORVASTATIN
     Dosage: 40 MG, QD
     Route: 048
     Dates: start: 2016

REACTIONS (3)
  - Decreased appetite [Unknown]
  - Cholangiocarcinoma [Not Recovered/Not Resolved]
  - Abdominal pain [Unknown]

NARRATIVE: CASE EVENT DATE: 201801
